APPROVED DRUG PRODUCT: PHENTERMINE RESIN COMPLEX
Active Ingredient: PHENTERMINE RESIN COMPLEX
Strength: EQ 15MG BASE
Dosage Form/Route: CAPSULE, EXTENDED RELEASE;ORAL
Application: A040872 | Product #001
Applicant: LANNETT CO INC
Approved: Jul 28, 2011 | RLD: No | RS: No | Type: DISCN